FAERS Safety Report 15489193 (Version 1)
Quarter: 2018Q4

REPORT INFORMATION
  Report Type: Report from Study
  Country: US (occurrence: US)
  Receive Date: 20181011
  Receipt Date: 20181011
  Transmission Date: 20190205
  Serious: Yes (Other)
  Sender: FDA-Public Use
  Company Number: US-AMGEN-USASL2018140042

PATIENT
  Age: 53 Year
  Sex: Female

DRUGS (1)
  1. REPATHA [Suspect]
     Active Substance: EVOLOCUMAB
     Indication: BLOOD CHOLESTEROL INCREASED
     Dosage: 140 MG, Q2WK
     Route: 065

REACTIONS (14)
  - Arthralgia [Unknown]
  - Diverticulitis [Unknown]
  - Back pain [Unknown]
  - Liver disorder [Unknown]
  - Paraesthesia oral [Unknown]
  - Influenza [Unknown]
  - Anxiety [Unknown]
  - Glossodynia [Unknown]
  - Gastritis [Unknown]
  - Vision blurred [Unknown]
  - Laryngitis [Unknown]
  - Cough [Unknown]
  - Peripheral swelling [Unknown]
  - Pharyngeal oedema [Unknown]

NARRATIVE: CASE EVENT DATE: 2018
